FAERS Safety Report 23459093 (Version 1)
Quarter: 2024Q1

REPORT INFORMATION
  Report Type: Spontaneous
  Country: US (occurrence: US)
  Receive Date: 20240131
  Receipt Date: 20240131
  Transmission Date: 20240410
  Serious: No
  Sender: FDA-Public Use
  Company Number: US-TAKEDA-2024TUS008631

PATIENT
  Age: 8 Year
  Sex: Male
  Weight: 27.1 kg

DRUGS (1)
  1. HYQVIA [Suspect]
     Active Substance: HUMAN IMMUNOGLOBULIN G\HYALURONIDASE (HUMAN RECOMBINANT)
     Indication: Primary immunodeficiency syndrome
     Dosage: 10 GRAM
     Route: 058
     Dates: start: 20240126

REACTIONS (2)
  - Abdominal pain [Unknown]
  - Incorrect dose administered [Unknown]
